FAERS Safety Report 5611120-8 (Version None)
Quarter: 2008Q1

REPORT INFORMATION
  Report Type: 
  Country: None (occurrence: None)
  Receive Date: 20080201
  Receipt Date: 20071024
  Transmission Date: 20080703
  Serious: Yes (Other)
  Sender: FDA-Public Use
  Company Number: US-ELI_LILLY_AND_COMPANY-US200801006011

PATIENT
  Age: 33 Year
  Sex: Female

DRUGS (3)
  1. ZYPREXA [Suspect]
     Indication: AGITATION
     Dosage: 10 MG, UNK
     Route: 030
     Dates: start: 20071024, end: 20071024
  2. ZYPREXA ZYDIS [Interacting]
     Indication: AGITATION
     Dosage: 10 MG, UNK
     Route: 002
     Dates: start: 20071023, end: 20071023
  3. ATIVAN [Concomitant]
     Indication: AGITATION
     Dosage: 2 MG, UNK
     Route: 048
     Dates: start: 20071023, end: 20071023

REACTIONS (4)
  - DRUG INTERACTION [None]
  - HYPOTENSION [None]
  - RESPIRATORY DISTRESS [None]
  - TACHYPNOEA [None]
